FAERS Safety Report 6514410-X (Version None)
Quarter: 2009Q4

REPORT INFORMATION
  Report Type: 
  Country: None (occurrence: None)
  Receive Date: 20091223
  Receipt Date: 20091216
  Transmission Date: 20100525
  Serious: Yes (Hospitalization)
  Sender: FDA-Public Use
  Company Number: US-BIOGENIDEC-2009BI040025

PATIENT
  Age: 60 Year
  Sex: Female

DRUGS (25)
  1. TYSABRI [Suspect]
     Indication: MULTIPLE SCLEROSIS
     Route: 042
     Dates: start: 20070614
  2. BACLOFEN [Concomitant]
     Route: 037
  3. NYSTATIN [Concomitant]
  4. DIPHENHYDRAMINE HCL [Concomitant]
  5. HYDROCHLOROTHIAZIDE [Concomitant]
  6. ARICEPT [Concomitant]
  7. CLONAZEPAM [Concomitant]
  8. CLOTRIMAZOLE 1% [Concomitant]
     Route: 061
  9. BETAMETHASONE 0.05% [Concomitant]
     Route: 061
  10. MULTI-VITAMIN [Concomitant]
  11. ASCORBIC ACID [Concomitant]
  12. NAPROSYN [Concomitant]
  13. TYLENOL (CAPLET) [Concomitant]
  14. IBUPROFEN [Concomitant]
  15. MACROBID [Concomitant]
  16. DARVOCET [Concomitant]
  17. CALCIUM [Concomitant]
  18. MAGNESIUM [Concomitant]
  19. ZINC [Concomitant]
  20. COD LIVER OIL [Concomitant]
  21. PRIMROSE OIL [Concomitant]
  22. LECITHIN [Concomitant]
  23. VITAMIN B COMPLEX CAP [Concomitant]
  24. VITAMIN B-12 [Concomitant]
  25. TUCKS [Concomitant]
     Route: 054

REACTIONS (7)
  - ASTHENIA [None]
  - CHOLECYSTITIS [None]
  - ENDOMETRIAL CANCER [None]
  - LUNG NEOPLASM [None]
  - PAIN [None]
  - TOOTH EXTRACTION [None]
  - URINARY TRACT INFECTION [None]
